FAERS Safety Report 4323648-1 (Version None)
Quarter: 2004Q1

REPORT INFORMATION
  Report Type: 
  Country: None (occurrence: None)
  Receive Date: 20040323
  Receipt Date: 20040309
  Transmission Date: 20041129
  Serious: Yes (Other)
  Sender: FDA-Public Use
  Company Number: BE-JNJFOC-20040302013

PATIENT
  Age: 61 Year
  Sex: Female

DRUGS (2)
  1. PROPULSID [Suspect]
     Indication: IMPAIRED GASTRIC EMPTYING
     Dosage: 10  MG, 2 IN 1 DAY
     Dates: start: 20040122
  2. NEXIAM (UNKNOWN) ESOMEPRAZOLE [Concomitant]

REACTIONS (1)
  - ATRIOVENTRICULAR BLOCK FIRST DEGREE [None]
